FAERS Safety Report 13674739 (Version 1)
Quarter: 2017Q2

REPORT INFORMATION
  Report Type: Spontaneous
  Country: US (occurrence: US)
  Receive Date: 20170621
  Receipt Date: 20170621
  Transmission Date: 20170830
  Serious: No
  Sender: FDA-Public Use
  Company Number: US-PFIZER INC-2017264366

PATIENT
  Age: 63 Year
  Sex: Female
  Weight: 83 kg

DRUGS (2)
  1. GENOTROPIN [Suspect]
     Active Substance: SOMATROPIN
     Indication: INSOMNIA
  2. GENOTROPIN [Suspect]
     Active Substance: SOMATROPIN
     Indication: RESTLESS LEGS SYNDROME
     Dosage: 0.2 MG, 2X/WEEK
     Dates: start: 201705

REACTIONS (3)
  - Blood growth hormone decreased [Unknown]
  - Product use in unapproved indication [Not Recovered/Not Resolved]
  - Weight increased [Unknown]

NARRATIVE: CASE EVENT DATE: 201705
